FAERS Safety Report 13746099 (Version 1)
Quarter: 2017Q3

REPORT INFORMATION
  Report Type: Spontaneous
  Country: US (occurrence: US)
  Receive Date: 20170712
  Receipt Date: 20170712
  Transmission Date: 20171127
  Serious: Yes (Disabling, Other)
  Sender: FDA-Public Use
  Company Number: US-JUBILANT CADISTA PHARMACEUTICALS-2017JUB00251

PATIENT
  Age: 39 Year
  Sex: Male

DRUGS (3)
  1. BUPIVACAINE. [Suspect]
     Active Substance: BUPIVACAINE
     Indication: ARTHRALGIA
     Route: 051
  2. EPINEPHRINE. [Suspect]
     Active Substance: EPINEPHRINE
     Indication: ARTHRALGIA
     Route: 051
  3. METHYLPREDNISOLONE. [Suspect]
     Active Substance: METHYLPREDNISOLONE
     Indication: ARTHRALGIA
     Route: 051

REACTIONS (4)
  - Dyspnoea [Unknown]
  - Sinus arrhythmia [Recovered/Resolved]
  - Familial periodic paralysis [Recovered/Resolved]
  - Metabolic acidosis [Unknown]
